FAERS Safety Report 9396734 (Version 1)
Quarter: 2013Q3

REPORT INFORMATION
  Report Type: Spontaneous
  Country: IT (occurrence: IT)
  Receive Date: 20130712
  Receipt Date: 20130712
  Transmission Date: 20140515
  Serious: Yes (Disabling, Other)
  Sender: FDA-Public Use
  Company Number: IT-ASTRAZENECA-2013SE50784

PATIENT
  Age: 28350 Day
  Sex: Female
  Weight: 55 kg

DRUGS (3)
  1. TICAGRELOR [Suspect]
     Route: 048
     Dates: start: 20130426, end: 20130624
  2. RAMIPRIL [Interacting]
     Route: 048
  3. CARDIRENE [Interacting]
     Route: 065

REACTIONS (2)
  - Drug interaction [Unknown]
  - Renal failure acute [Unknown]
